FAERS Safety Report 4584596-5 (Version None)
Quarter: 2005Q1

REPORT INFORMATION
  Report Type: 
  Country: None (occurrence: None)
  Receive Date: 20050125
  Receipt Date: 20040922
  Transmission Date: 20050727
  Serious: No
  Sender: FDA-Public Use
  Company Number: USA040979124

PATIENT
  Age: 45 Year
  Sex: Female

DRUGS (2)
  1. FORTEO [Suspect]
     Indication: RHEUMATOID ARTHRITIS
     Dates: start: 20040101
  2. ENBREL [Concomitant]

REACTIONS (1)
  - INJECTION SITE PAIN [None]
